FAERS Safety Report 8122527-1 (Version None)
Quarter: 2012Q1

REPORT INFORMATION
  Report Type: 
  Country: None (occurrence: None)
  Receive Date: 20120208
  Receipt Date: 20120206
  Transmission Date: 20120608
  Serious: Yes (Hospitalization)
  Sender: FDA-Public Use
  Company Number: AU-ROCHE-1037858

PATIENT
  Sex: Male
  Weight: 90 kg

DRUGS (4)
  1. NITRAZEPAM [Concomitant]
     Indication: INSOMNIA
     Route: 048
  2. XELODA [Suspect]
     Indication: COLORECTAL CANCER
     Route: 048
     Dates: start: 20120115, end: 20120119
  3. DALTEPARIN SODIUM [Concomitant]
     Indication: DEEP VEIN THROMBOSIS
     Route: 058
     Dates: start: 20111001
  4. FENTANYL CITRATE [Concomitant]
     Indication: PAIN
     Route: 061
     Dates: start: 20111201

REACTIONS (1)
  - INTESTINAL OBSTRUCTION [None]
